FAERS Safety Report 15997669 (Version 1)
Quarter: 2019Q1

REPORT INFORMATION
  Report Type: Spontaneous
  Country: DE (occurrence: DE)
  Receive Date: 20190222
  Receipt Date: 20190222
  Transmission Date: 20190418
  Serious: Yes (Disabling, Other)
  Sender: FDA-Public Use
  Company Number: DE-BIOCODEX SA-201900072

PATIENT
  Age: 10 Year
  Sex: Male
  Weight: 30 kg

DRUGS (2)
  1. CLOBAZAM. [Concomitant]
     Active Substance: CLOBAZAM
     Indication: PRODUCT USED FOR UNKNOWN INDICATION
     Dosage: UNK
     Route: 065
  2. DIACOMIT [Suspect]
     Active Substance: STIRIPENTOL
     Dosage: 25MG/KG BODY WEIGHT
     Route: 065

REACTIONS (2)
  - Gait disturbance [Unknown]
  - Myopathy [Unknown]
